FAERS Safety Report 9552039 (Version 1)
Quarter: 2013Q3

REPORT INFORMATION
  Report Type: Spontaneous
  Country: US (occurrence: None)
  Receive Date: 20130724
  Receipt Date: 20130724
  Transmission Date: 20140515
  Serious: Yes (Other)
  Sender: FDA-Public Use
  Company Number: PHEH2013US001997

PATIENT
  Age: 80 Year
  Sex: Male

DRUGS (8)
  1. DIOVAN HCT [Suspect]
     Dosage: 1 DF, (160 MG VALS AND 12.5 MG HCTZ), QD, ORAL
     Route: 048
  2. METOPROLOL (METOPROLOL) [Concomitant]
  3. ASPIRIN (ACETYLSALICYLIC ACID) [Concomitant]
  4. ATORVASTATIN (ATORVASTATIN) [Concomitant]
  5. STOOL SOFTNER (DOCUATE SODIUM) [Concomitant]
  6. SERTRALINE (SERTRALINE) [Concomitant]
  7. AMBIEN (ZOLPIDEM TARTRATE) [Concomitant]
  8. PRESERVISION (ASCORBIC ACID, CUPRIC OXIDE, TOCOPHERYL ACETATE, XANTOFYL, ZINIC OXIDE) [Concomitant]

REACTIONS (2)
  - Pulmonary oedema [None]
  - Hypertension [None]
